FAERS Safety Report 15696245 (Version 3)
Quarter: 2019Q1

REPORT INFORMATION
  Report Type: Report from Study
  Country: IT (occurrence: IT)
  Receive Date: 20181206
  Receipt Date: 20190226
  Transmission Date: 20190417
  Serious: Yes (Death, Hospitalization)
  Sender: FDA-Public Use
  Company Number: IT-PFIZER INC-2018496280

PATIENT
  Age: 66 Year
  Sex: Male
  Weight: 78.5 kg

DRUGS (12)
  1. HUMALOG [Concomitant]
     Active Substance: INSULIN LISPRO
     Dosage: UNK
     Dates: start: 20180305
  2. MEDROL [Concomitant]
     Active Substance: METHYLPREDNISOLONE
     Dosage: UNK
     Dates: start: 20181016, end: 20181024
  3. 5-FU [Suspect]
     Active Substance: FLUOROURACIL
     Dosage: 4700 MG, CYCLICAL (ON DAY 1, OF A 14 DAY CYCLE)
     Route: 042
     Dates: start: 20180803, end: 20180926
  4. LANSOPRAZOLE. [Concomitant]
     Active Substance: LANSOPRAZOLE
     Dosage: UNK
     Dates: start: 20181009
  5. LANTUS [Concomitant]
     Active Substance: INSULIN GLARGINE
     Dosage: UNK
     Dates: start: 20180305
  6. ACICLOVIR [Concomitant]
     Active Substance: ACYCLOVIR
     Dosage: UNK
     Dates: start: 20181011, end: 20181017
  7. 5-FU [Suspect]
     Active Substance: FLUOROURACIL
     Indication: PANCREATIC CARCINOMA METASTATIC
     Dosage: 780 MG, CYCLICAL (ON DAY 1, OF A 14 DAY CYCLE)
     Route: 040
     Dates: start: 20180803, end: 20180926
  8. PEGILODECAKIN [Suspect]
     Active Substance: PEGILODECAKIN
     Indication: PANCREATIC CARCINOMA METASTATIC
     Dosage: 0.4 MG, CYCLICAL (ON DAYS 1-5 AND DAYS 8-12)
     Route: 058
     Dates: start: 20180803, end: 20181005
  9. DEURSIL [Concomitant]
     Active Substance: URSODIOL
     Dosage: UNK
     Dates: start: 20181013
  10. OXALIPLATIN. [Suspect]
     Active Substance: OXALIPLATIN
     Indication: PANCREATIC CARCINOMA METASTATIC
     Dosage: 165 MG, CYCLICAL (ON DAY 1)
     Route: 042
     Dates: start: 20180803, end: 20180924
  11. LEUCOVORIN. [Suspect]
     Active Substance: LEUCOVORIN
     Indication: PANCREATIC CARCINOMA METASTATIC
     Dosage: 780 MG, CYCLICAL (ON DAY 1)
     Route: 042
     Dates: start: 20180803, end: 20180924
  12. MYCOSTATIN [Concomitant]
     Active Substance: NYSTATIN
     Dosage: UNK
     Dates: start: 20181009

REACTIONS (2)
  - Escherichia sepsis [Recovered/Resolved]
  - Cholangitis [Recovered/Resolved]

NARRATIVE: CASE EVENT DATE: 20181008
